FAERS Safety Report 5930456-4 (Version None)
Quarter: 2008Q4

REPORT INFORMATION
  Report Type: 
  Country: None (occurrence: None)
  Receive Date: 20081022
  Receipt Date: 20081006
  Transmission Date: 20090506
  Serious: Yes (Hospitalization)
  Sender: FDA-Public Use
  Company Number: 2008PL000152

PATIENT
  Age: 70 Year
  Sex: Female

DRUGS (1)
  1. LOTRONEX [Suspect]
     Dosage: PO
     Route: 048

REACTIONS (5)
  - ADVERSE REACTION [None]
  - DIARRHOEA [None]
  - GASTROENTERITIS [None]
  - NAUSEA [None]
  - URINE ODOUR ABNORMAL [None]
